FAERS Safety Report 12030023 (Version 1)
Quarter: 2016Q1

REPORT INFORMATION
  Report Type: Report from Study
  Country: US (occurrence: US)
  Receive Date: 20160207
  Receipt Date: 20160207
  Transmission Date: 20160526
  Serious: Yes (Other)
  Sender: FDA-Public Use
  Company Number: US-ABBVIE-15K-163-1503955-00

PATIENT
  Age: 13 Year
  Sex: Female

DRUGS (1)
  1. HUMIRA [Suspect]
     Active Substance: ADALIMUMAB
     Indication: RHEUMATOID ARTHRITIS
     Route: 058
     Dates: start: 2014

REACTIONS (14)
  - Menorrhagia [Unknown]
  - Pharyngeal disorder [Unknown]
  - Gait disturbance [Unknown]
  - Pain [Unknown]
  - Anxiety [Unknown]
  - Dry skin [Unknown]
  - Arthralgia [Unknown]
  - Palpitations [Unknown]
  - Rash [Unknown]
  - Nasopharyngitis [Unknown]
  - Visual impairment [Unknown]
  - Abdominal pain upper [Recovered/Resolved]
  - Activities of daily living impaired [Unknown]
  - Headache [Unknown]

NARRATIVE: CASE EVENT DATE: 201511
